FAERS Safety Report 9361154 (Version 3)
Quarter: 2013Q3

REPORT INFORMATION
  Report Type: Spontaneous
  Country: JP (occurrence: JP)
  Receive Date: 20130621
  Receipt Date: 20130808
  Transmission Date: 20140515
  Serious: Yes (Hospitalization)
  Sender: FDA-Public Use
  Company Number: JP-ABBOTT-13P-087-1100326-00

PATIENT
  Age: 55 Year
  Sex: Male

DRUGS (10)
  1. HUMIRA [Suspect]
     Indication: RHEUMATOID ARTHRITIS
     Route: 058
     Dates: start: 20080710, end: 20130521
  2. BLOPRESS TABLETS [Suspect]
     Indication: HYPERTENSION
     Route: 048
     Dates: start: 20130313, end: 20130408
  3. BLOPRESS TABLETS [Suspect]
     Route: 048
     Dates: start: 20130409, end: 20130521
  4. BLOPRESS TABLETS [Suspect]
  5. RHEUMATREX [Suspect]
     Indication: RHEUMATOID ARTHRITIS
     Dosage: 4 MG/WEEK
     Route: 048
     Dates: start: 19921230, end: 20081008
  6. RHEUMATREX [Suspect]
     Route: 048
     Dates: start: 20090611, end: 20130521
  7. FOLIAMIN [Concomitant]
     Indication: FOLATE DEFICIENCY
     Route: 048
     Dates: start: 20041117, end: 20130521
  8. FOLIAMIN [Concomitant]
     Indication: PROPHYLAXIS
  9. FOLIAMIN [Concomitant]
     Indication: RHEUMATOID ARTHRITIS
  10. ZOLPIDEM TARTRATE [Concomitant]
     Indication: INSOMNIA
     Route: 048
     Dates: start: 20120801, end: 20130521

REACTIONS (3)
  - Immune thrombocytopenic purpura [Recovering/Resolving]
  - Hepatic function abnormal [Recovered/Resolved]
  - Hypertension [Recovering/Resolving]
